FAERS Safety Report 23091648 (Version 2)
Quarter: 2023Q4

REPORT INFORMATION
  Report Type: Spontaneous
  Country: US (occurrence: None)
  Receive Date: 20231020
  Receipt Date: 20231208
  Transmission Date: 20240109
  Serious: Yes (Death)
  Sender: FDA-Public Use
  Company Number: 2023A238477

PATIENT

DRUGS (2)
  1. IMJUDO [Suspect]
     Active Substance: TREMELIMUMAB\TREMELIMUMAB-ACTL
     Route: 042
  2. IMFINZI [Suspect]
     Active Substance: DURVALUMAB

REACTIONS (2)
  - Hepatocellular carcinoma [Fatal]
  - Hepatic encephalopathy [Fatal]
